FAERS Safety Report 25422934 (Version 1)
Quarter: 2025Q2

REPORT INFORMATION
  Report Type: Spontaneous
  Country: US (occurrence: US)
  Receive Date: 20250611
  Receipt Date: 20250611
  Transmission Date: 20250716
  Serious: No
  Sender: ROCHE
  Company Number: US-ROCHE-10000303591

PATIENT
  Sex: Female

DRUGS (1)
  1. XOLAIR [Suspect]
     Active Substance: OMALIZUMAB
     Indication: Urticaria
     Dosage: 1 PEN, STRENGTH:300MG/2ML, ONGOING
     Route: 058
     Dates: start: 202407

REACTIONS (3)
  - Rash [Unknown]
  - Urticaria [Unknown]
  - Off label use [Unknown]
